FAERS Safety Report 7004833-7 (Version None)
Quarter: 2010Q3

REPORT INFORMATION
  Report Type: 
  Country: None (occurrence: None)
  Receive Date: 20100921
  Receipt Date: 20100910
  Transmission Date: 20110219
  Serious: Yes (Death)
  Sender: FDA-Public Use
  Company Number: DE-TEVA-246382ISR

PATIENT
  Age: 13 Year
  Sex: Female

DRUGS (1)
  1. PAMIDRONIC ACID [Suspect]
     Route: 042
     Dates: start: 20090101, end: 20090101

REACTIONS (5)
  - DRUG ADMINISTRATION ERROR [None]
  - EXTRAVASATION [None]
  - MULTI-ORGAN FAILURE [None]
  - NECROSIS [None]
  - SEPSIS [None]
